FAERS Safety Report 7552071-1 (Version None)
Quarter: 2011Q2

REPORT INFORMATION
  Report Type: 
  Country: None (occurrence: None)
  Receive Date: 20110616
  Receipt Date: 20110607
  Transmission Date: 20111010
  Serious: No
  Sender: FDA-Public Use
  Company Number: JP-JNJFOC-20110605506

PATIENT
  Sex: Female

DRUGS (1)
  1. FENTANYL-100 [Suspect]
     Indication: CANCER PAIN
     Dosage: 25 UG/HR + 12.5 UG/HR = 37.5 UG/HR
     Route: 062
     Dates: start: 20110604

REACTIONS (6)
  - DRUG DOSE OMISSION [None]
  - FEELING ABNORMAL [None]
  - PAIN [None]
  - APPLICATION SITE PAIN [None]
  - APPLICATION SITE HAEMATOMA [None]
  - NAUSEA [None]
